FAERS Safety Report 18656036 (Version 3)
Quarter: 2021Q1

REPORT INFORMATION
  Report Type: Spontaneous
  Country: US (occurrence: US)
  Receive Date: 20201223
  Receipt Date: 20210211
  Transmission Date: 20210419
  Serious: No
  Sender: FDA-Public Use
  Company Number: NVSC2020US339379

PATIENT
  Sex: Male

DRUGS (1)
  1. XIIDRA [Suspect]
     Active Substance: LIFITEGRAST
     Indication: DRY EYE
     Dosage: UNK
     Route: 065
     Dates: start: 20201217

REACTIONS (6)
  - Fatigue [Unknown]
  - Skin burning sensation [Unknown]
  - Vision blurred [Unknown]
  - Therapeutic response decreased [Unknown]
  - Stress [Unknown]
  - Eye pain [Unknown]
